FAERS Safety Report 9276391 (Version 1)
Quarter: 2013Q2

REPORT INFORMATION
  Report Type: Spontaneous
  Country: ES (occurrence: ES)
  Receive Date: 20130507
  Receipt Date: 20130507
  Transmission Date: 20140414
  Serious: Yes (Other)
  Sender: FDA-Public Use
  Company Number: ES-FRI-1000044977

PATIENT
  Age: 84 Year
  Sex: Male
  Weight: 74 kg

DRUGS (1)
  1. ACLIDINIUM BROMIDE [Suspect]
     Indication: BRONCHITIS CHRONIC
     Dosage: 644 MCG
     Route: 055
     Dates: start: 20130312, end: 20130318

REACTIONS (1)
  - Penile oedema [Unknown]
